FAERS Safety Report 22870425 (Version 4)
Quarter: 2025Q1

REPORT INFORMATION
  Report Type: Spontaneous
  Country: JP (occurrence: JP)
  Receive Date: 20230827
  Receipt Date: 20250114
  Transmission Date: 20250409
  Serious: Yes (Other)
  Sender: TAKEDA
  Company Number: JP-TAKEDA-2023TJP010234

PATIENT
  Age: 70 Year
  Sex: Male

DRUGS (2)
  1. VONVENDI [Suspect]
     Active Substance: VON WILLEBRAND FACTOR (RECOMBINANT)
     Indication: Haemorrhagic diathesis
     Dates: start: 20230530, end: 20230530
  2. VONVENDI [Suspect]
     Active Substance: VON WILLEBRAND FACTOR (RECOMBINANT)
     Dosage: 3900 INTERNATIONAL UNIT, QD
     Dates: start: 20230531, end: 20230603

REACTIONS (2)
  - Drug ineffective [Unknown]
  - No adverse event [Unknown]
